FAERS Safety Report 9353315 (Version 1)
Quarter: 2013Q2

REPORT INFORMATION
  Report Type: Spontaneous
  Country: CN (occurrence: CN)
  Receive Date: 20130618
  Receipt Date: 20130618
  Transmission Date: 20140414
  Serious: Yes (Hospitalization, Other)
  Sender: FDA-Public Use
  Company Number: CN-PFIZER INC-2013177992

PATIENT
  Age: 11 Year
  Sex: Male
  Weight: 41 kg

DRUGS (1)
  1. IBUPROFEN [Suspect]
     Indication: PYREXIA
     Dosage: 10 ML, 3X/DAY
     Route: 048
     Dates: start: 20120316, end: 20120317

REACTIONS (3)
  - Roseola [Recovered/Resolved]
  - Rash maculo-papular [Recovered/Resolved]
  - Drug ineffective [Unknown]
